FAERS Safety Report 4437137-7 (Version None)
Quarter: 2004Q3

REPORT INFORMATION
  Report Type: 
  Country: None (occurrence: None)
  Receive Date: 20040827
  Receipt Date: 20040817
  Transmission Date: 20050211
  Serious: Yes (Other)
  Sender: FDA-Public Use
  Company Number: 2004229123US

PATIENT
  Age: 70 Year
  Sex: Female

DRUGS (3)
  1. PROVERA [Suspect]
     Dates: start: 20000701, end: 20020901
  2. PREMPRO [Suspect]
     Dates: start: 19980101, end: 20000701
  3. PREMARIN [Suspect]
     Dates: start: 20000701, end: 20020901

REACTIONS (1)
  - CEREBROVASCULAR ACCIDENT [None]
